FAERS Safety Report 6654533-8 (Version None)
Quarter: 2010Q1

REPORT INFORMATION
  Report Type: 
  Country: None (occurrence: None)
  Receive Date: 20100326
  Receipt Date: 20100317
  Transmission Date: 20100710
  Serious: Yes (Other)
  Sender: FDA-Public Use
  Company Number: US-ABBOTT-10P-163-0632632-00

PATIENT
  Sex: Female

DRUGS (3)
  1. TRICOR [Suspect]
     Indication: BLOOD TRIGLYCERIDES INCREASED
     Dates: start: 20100121, end: 20100301
  2. CENTRUM CARDIO [Concomitant]
     Indication: DRUG USE FOR UNKNOWN INDICATION
  3. VITAMIN D [Concomitant]
     Indication: DRUG USE FOR UNKNOWN INDICATION

REACTIONS (3)
  - BLOOD PRESSURE DECREASED [None]
  - ECZEMA [None]
  - MALIGNANT MELANOMA [None]
